FAERS Safety Report 6736862-2 (Version None)
Quarter: 2010Q2

REPORT INFORMATION
  Report Type: 
  Country: None (occurrence: None)
  Receive Date: 20100520
  Receipt Date: 20100520
  Transmission Date: 20101027
  Serious: No
  Sender: FDA-Public Use
  Company Number: None

PATIENT
  Age: 63 Year
  Sex: Male

DRUGS (1)
  1. MEPERIDINE HCL [Suspect]
     Indication: PROCEDURAL PAIN
     Dosage: 75 MG ONCE IV
     Route: 042
     Dates: start: 20100517, end: 20100517

REACTIONS (3)
  - ERYTHEMA [None]
  - OEDEMA PERIPHERAL [None]
  - SWELLING [None]
